FAERS Safety Report 6355571-5 (Version None)
Quarter: 2009Q3

REPORT INFORMATION
  Report Type: 
  Country: None (occurrence: None)
  Receive Date: 20090914
  Receipt Date: 20090908
  Transmission Date: 20100115
  Serious: Yes (Other)
  Sender: FDA-Public Use
  Company Number: IL-AMGEN-UK357324

PATIENT
  Age: 19 Year
  Sex: Female

DRUGS (7)
  1. ARANESP [Suspect]
     Indication: DIALYSIS
     Route: 058
     Dates: start: 20071001, end: 20090720
  2. VALGANCICLOVIR HCL [Concomitant]
     Route: 065
     Dates: start: 20090602
  3. PROGRAF [Concomitant]
     Route: 065
     Dates: start: 20060201
  4. CELLCEPT [Concomitant]
     Route: 065
     Dates: start: 20060201
  5. PREDNISONE [Concomitant]
     Route: 065
     Dates: start: 20060201
  6. MYFORTIC [Concomitant]
     Route: 065
     Dates: start: 20090601
  7. RECORMON [Concomitant]

REACTIONS (2)
  - APLASIA PURE RED CELL [None]
  - COMPLICATIONS OF TRANSPLANTED KIDNEY [None]
